FAERS Safety Report 18842085 (Version 4)
Quarter: 2021Q1

REPORT INFORMATION
  Report Type: Spontaneous
  Country: US (occurrence: US)
  Receive Date: 20210203
  Receipt Date: 20210320
  Transmission Date: 20210419
  Serious: No
  Sender: FDA-Public Use
  Company Number: US-SA-2021SA031954

PATIENT
  Age: 73 Year
  Sex: Male

DRUGS (2)
  1. LANTUS SOLOSTAR [Suspect]
     Active Substance: INSULIN GLARGINE
     Indication: TYPE 2 DIABETES MELLITUS
     Dosage: 20 IU, QD
     Route: 065
     Dates: start: 202101
  2. QUETIAPINE FUMARATE. [Suspect]
     Active Substance: QUETIAPINE FUMARATE
     Indication: POST-TRAUMATIC STRESS DISORDER
     Dosage: UNK
     Route: 065

REACTIONS (4)
  - Incorrect dose administered [Unknown]
  - Blood glucose increased [Unknown]
  - Dizziness [Unknown]
  - Nightmare [Unknown]

NARRATIVE: CASE EVENT DATE: 202101
